FAERS Safety Report 6405466-3 (Version None)
Quarter: 2009Q4

REPORT INFORMATION
  Report Type: 
  Country: None (occurrence: None)
  Receive Date: 20091019
  Receipt Date: 20091014
  Transmission Date: 20100525
  Serious: Yes (Death)
  Sender: FDA-Public Use
  Company Number: DE-ASTRAZENECA-2009SE19974

PATIENT
  Age: 36 Year
  Sex: Female
  Weight: 70 kg

DRUGS (1)
  1. PROPOFOL [Suspect]
     Indication: SEDATION
     Route: 042
     Dates: start: 20090814, end: 20090820

REACTIONS (1)
  - PROPOFOL INFUSION SYNDROME [None]
